FAERS Safety Report 6706947-5 (Version None)
Quarter: 2010Q2

REPORT INFORMATION
  Report Type: 
  Country: None (occurrence: None)
  Receive Date: 20100503
  Receipt Date: 20100315
  Transmission Date: 20101027
  Serious: Yes (Death)
  Sender: FDA-Public Use
  Company Number: TH-ROCHE-700494

PATIENT
  Age: 9 Year
  Sex: Female

DRUGS (1)
  1. OSELTAMIVIR PHOSPHATE [Suspect]
     Indication: AVIAN INFLUENZA
     Route: 065
     Dates: start: 20040930, end: 20041003

REACTIONS (1)
  - INFLUENZA [None]
